FAERS Safety Report 25222174 (Version 1)
Quarter: 2025Q2

REPORT INFORMATION
  Report Type: Other
  Country: FR (occurrence: FR)
  Receive Date: 20250421
  Receipt Date: 20250421
  Transmission Date: 20250716
  Serious: Yes (Hospitalization, Other)
  Sender: Atnahs Healthcare
  Company Number: None

PATIENT
  Age: 55 Year
  Sex: Male
  Weight: 93.2 kg

DRUGS (5)
  1. VALIUM [Suspect]
     Active Substance: DIAZEPAM
     Indication: Product used for unknown indication
     Route: 065
  2. BROMAZEPAM [Suspect]
     Active Substance: BROMAZEPAM
     Indication: Product used for unknown indication
     Route: 065
     Dates: start: 202310
  3. UNSPECIFIED INGREDIENT [Suspect]
     Active Substance: UNSPECIFIED INGREDIENT
     Indication: Product used for unknown indication
     Route: 065
  4. METHADONE [Concomitant]
     Active Substance: METHADONE HYDROCHLORIDE
     Indication: Product used for unknown indication
  5. EPCLUSA [Concomitant]
     Active Substance: SOFOSBUVIR\VELPATASVIR
     Indication: Hepatitis C
     Dates: start: 202309

REACTIONS (9)
  - Acute kidney injury [Unknown]
  - Drug use disorder [Recovering/Resolving]
  - Substance use disorder [Recovering/Resolving]
  - Toxicity to various agents [Recovered/Resolved with Sequelae]
  - Overdose [Recovered/Resolved]
  - Fatigue [Unknown]
  - Insomnia [Unknown]
  - Sedation [Unknown]
  - Irritability [Unknown]

NARRATIVE: CASE EVENT DATE: 20231001
